FAERS Safety Report 9727869 (Version 1)
Quarter: 2013Q4

REPORT INFORMATION
  Report Type: Spontaneous
  Country: NL (occurrence: NL)
  Receive Date: 20131204
  Receipt Date: 20131204
  Transmission Date: 20140711
  Serious: Yes (Other)
  Sender: FDA-Public Use
  Company Number: NL-BIOGENIDEC-2013BI115532

PATIENT
  Sex: Female

DRUGS (3)
  1. AVONEX [Suspect]
     Indication: MULTIPLE SCLEROSIS
     Route: 030
     Dates: start: 20080716, end: 20110721
  2. AVONEX [Suspect]
     Indication: MULTIPLE SCLEROSIS
     Route: 030
     Dates: start: 20110722
  3. NOVANTRONE [Concomitant]

REACTIONS (4)
  - Urostomy [Unknown]
  - Urinary cystectomy [Unknown]
  - General physical health deterioration [Not Recovered/Not Resolved]
  - Drug ineffective [Unknown]
